FAERS Safety Report 11633720 (Version 2)
Quarter: 2015Q4

REPORT INFORMATION
  Report Type: Spontaneous
  Country: US (occurrence: US)
  Receive Date: 20151015
  Receipt Date: 20151113
  Transmission Date: 20160304
  Serious: No
  Sender: FDA-Public Use
  Company Number: GXBR2015US002212

PATIENT
  Sex: Female

DRUGS (1)
  1. LIDOCAINE. [Suspect]
     Active Substance: LIDOCAINE
     Indication: PROCTALGIA
     Dosage: UNK DF, 3-4 TIMES A DAY
     Route: 054
     Dates: start: 20150917, end: 20150917

REACTIONS (1)
  - Drug ineffective [Unknown]
